FAERS Safety Report 10553812 (Version 2)
Quarter: 2015Q1

REPORT INFORMATION
  Report Type: Spontaneous
  Country: GR (occurrence: GR)
  Receive Date: 20141030
  Receipt Date: 20150306
  Transmission Date: 20150720
  Serious: Yes (Other)
  Sender: FDA-Public Use
  Company Number: GR-AMGEN-GRCSP2014083440

PATIENT
  Age: 60 Year
  Sex: Female

DRUGS (6)
  1. ENBREL [Suspect]
     Active Substance: ETANERCEPT
     Indication: RHEUMATOID ARTHRITIS
     Dosage: 25 MG, WEEKLY
     Route: 065
     Dates: start: 2010
  2. METHOTREXATE [Concomitant]
     Active Substance: METHOTREXATE
     Dosage: 10 MG, WEEKLY
  3. ACTONEL [Concomitant]
     Active Substance: RISEDRONATE SODIUM
     Dosage: UNK
  4. ENBREL [Suspect]
     Active Substance: ETANERCEPT
     Dosage: 50 UNK, UNK
     Route: 065
  5. RISEDRONATE SODIUM. [Concomitant]
     Active Substance: RISEDRONATE SODIUM
     Indication: PROPHYLAXIS
     Dosage: 35 MG, WEEKLY
  6. PREDNISOLON                        /00016201/ [Concomitant]
     Active Substance: PREDNISOLONE
     Indication: RHEUMATOID ARTHRITIS
     Dosage: 10 MG, DAILY

REACTIONS (1)
  - Non-Hodgkin^s lymphoma [Recovered/Resolved]

NARRATIVE: CASE EVENT DATE: 2011
